FAERS Safety Report 7486196-6 (Version None)
Quarter: 2011Q2

REPORT INFORMATION
  Report Type: 
  Country: None (occurrence: None)
  Receive Date: 20110517
  Receipt Date: 20110428
  Transmission Date: 20111010
  Serious: Yes (Hospitalization)
  Sender: FDA-Public Use
  Company Number: US-BAYER-201033813NA

PATIENT
  Age: 25 Year
  Sex: Female
  Weight: 172 kg

DRUGS (10)
  1. FLUCTASONE NASAL [Concomitant]
  2. YASMIN [Suspect]
     Indication: PRODUCT USED FOR UNKNOWN INDICATION
     Route: 048
     Dates: start: 20080201
  3. MEGACE [Concomitant]
     Dosage: 40 MG, UNK
  4. METFORMIN HCL [Concomitant]
     Dosage: 500 MG, UNK
  5. PHENERGAN HCL [Concomitant]
  6. FERROUS SULFATE TAB [Concomitant]
  7. ASPIRIN [Concomitant]
     Dosage: 325 MG, UNK
  8. BALZIVA [Concomitant]
  9. ACETAMINOPHEN [Concomitant]
  10. LEXAPRO [Concomitant]
     Dosage: 10 MG, UNK

REACTIONS (4)
  - PULMONARY EMBOLISM [None]
  - DEEP VEIN THROMBOSIS [None]
  - PAIN [None]
  - THROMBOSIS [None]
